FAERS Safety Report 5082768-7 (Version None)
Quarter: 2006Q3

REPORT INFORMATION
  Report Type: 
  Country: None (occurrence: None)
  Receive Date: 20060720
  Receipt Date: 20060221
  Transmission Date: 20061208
  Serious: Yes (Other)
  Sender: FDA-Public Use
  Company Number: 2006029439

PATIENT
  Sex: Female

DRUGS (1)
  1. CELEBREX [Suspect]
     Indication: ARTHRITIS
     Dosage: 400 MG (DAILY)
     Dates: start: 20020730, end: 20031227

REACTIONS (2)
  - ISCHAEMIC STROKE [None]
  - MYOCARDIAL INFARCTION [None]
